FAERS Safety Report 9369992 (Version 1)
Quarter: 2013Q2

REPORT INFORMATION
  Report Type: Spontaneous
  Country: US (occurrence: US)
  Receive Date: 20130626
  Receipt Date: 20130626
  Transmission Date: 20140414
  Serious: No
  Sender: FDA-Public Use
  Company Number: US-MYLANLABS-2012S1011112

PATIENT
  Sex: Female

DRUGS (3)
  1. METHOTREXATE TABLETS, USP [Suspect]
     Indication: PSORIASIS
     Route: 048
     Dates: start: 2011
  2. FOLIC ACID [Concomitant]
  3. IBUPROFEN [Concomitant]

REACTIONS (2)
  - Skin discolouration [Not Recovered/Not Resolved]
  - Skin burning sensation [Not Recovered/Not Resolved]
